FAERS Safety Report 23094133 (Version 3)
Quarter: 2023Q4

REPORT INFORMATION
  Report Type: Report from Study
  Country: CA (occurrence: CA)
  Receive Date: 20231023
  Receipt Date: 20231121
  Transmission Date: 20240110
  Serious: Yes (Hospitalization, Other)
  Sender: FDA-Public Use
  Company Number: CA-ABBVIE-5458064

PATIENT
  Age: 70 Year
  Sex: Male
  Weight: 108.86 kg

DRUGS (1)
  1. SKYRIZI [Suspect]
     Active Substance: RISANKIZUMAB-RZAA
     Indication: Psoriasis
     Route: 058
     Dates: start: 20200406

REACTIONS (4)
  - Limb injury [Not Recovered/Not Resolved]
  - Scratch [Unknown]
  - Localised infection [Unknown]
  - Impaired healing [Unknown]

NARRATIVE: CASE EVENT DATE: 20230812
